FAERS Safety Report 7590843-8 (Version None)
Quarter: 2011Q3

REPORT INFORMATION
  Report Type: 
  Country: None (occurrence: None)
  Receive Date: 20110705
  Receipt Date: 20110622
  Transmission Date: 20111222
  Serious: Yes (Hospitalization, Other)
  Sender: FDA-Public Use
  Company Number: PHHY2011JP55867

PATIENT
  Age: 40 Year
  Sex: Female

DRUGS (1)
  1. CYCLOSPORINE [Suspect]
     Indication: SYSTEMIC LUPUS ERYTHEMATOSUS
     Route: 048

REACTIONS (6)
  - SYSTEMIC LUPUS ERYTHEMATOSUS [None]
  - IDIOPATHIC THROMBOCYTOPENIC PURPURA [None]
  - PANCYTOPENIA [None]
  - IMMUNOGLOBULINS DECREASED [None]
  - RENAL FAILURE [None]
  - CYTOMEGALOVIRUS INFECTION [None]
